FAERS Safety Report 19508192 (Version 1)
Quarter: 2021Q3

REPORT INFORMATION
  Report Type: Other
  Country: GB (occurrence: GB)
  Receive Date: 20210708
  Receipt Date: 20210708
  Transmission Date: 20211014
  Serious: Yes (Other)
  Sender: FDA-Public Use
  Company Number: GB-LUPIN PHARMACEUTICALS INC.-2021-10944

PATIENT
  Age: 58 Year
  Sex: Male

DRUGS (1)
  1. SERTRALINE [Suspect]
     Active Substance: SERTRALINE HYDROCHLORIDE
     Indication: PRODUCT USED FOR UNKNOWN INDICATION
     Dosage: 200 MILLIGRAM, QD
     Route: 065
     Dates: start: 2014, end: 2015

REACTIONS (5)
  - Autism spectrum disorder [Unknown]
  - Condition aggravated [Unknown]
  - Inflammation [Unknown]
  - Pruritus [Unknown]
  - Peripheral swelling [Unknown]
